FAERS Safety Report 5289162-4 (Version None)
Quarter: 2007Q1

REPORT INFORMATION
  Report Type: 
  Country: None (occurrence: None)
  Receive Date: 20070124
  Receipt Date: 20060925
  Transmission Date: 20070707
  Serious: No
  Sender: FDA-Public Use
  Company Number: E2020-00493-SPO-US

PATIENT
  Sex: Female

DRUGS (1)
  1. ARICEPT [Suspect]
     Dosage: ORAL
     Route: 048
     Dates: start: 20060101, end: 20060101

REACTIONS (1)
  - CONVULSION [None]
